FAERS Safety Report 5929551-5 (Version None)
Quarter: 2008Q4

REPORT INFORMATION
  Report Type: 
  Country: None (occurrence: None)
  Receive Date: 20081024
  Receipt Date: 20081020
  Transmission Date: 20090506
  Serious: Yes (Death, Hospitalization)
  Sender: FDA-Public Use
  Company Number: B0542909A

PATIENT
  Age: 2 Year
  Sex: Male
  Weight: 14 kg

DRUGS (3)
  1. AUGMENTIN '125' [Suspect]
     Indication: TONSILLITIS
     Route: 048
     Dates: start: 20080919, end: 20080921
  2. CETIRIZINE HCL [Concomitant]
     Indication: TONSILLITIS
  3. HEXETIDINE [Concomitant]
     Indication: TONSILLITIS

REACTIONS (2)
  - DEATH [None]
  - RASH [None]
